FAERS Safety Report 8504995 (Version 4)
Quarter: 2015Q2

REPORT INFORMATION
  Report Type: Report from Study
  Country: US (occurrence: US)
  Receive Date: 20120412
  Receipt Date: 20150427
  Transmission Date: 20150821
  Serious: Yes (Hospitalization)
  Sender: FDA-Public Use
  Company Number: US-BIOGENIDEC-2012BI011845

PATIENT
  Age: 45 Year
  Sex: Female

DRUGS (1)
  1. TYSABRI [Suspect]
     Active Substance: NATALIZUMAB
     Indication: MULTIPLE SCLEROSIS
     Route: 042
     Dates: start: 20061214, end: 20131213

REACTIONS (4)
  - Musculoskeletal disorder [Not Recovered/Not Resolved]
  - Venomous bite [Recovered/Resolved]
  - Infected bites [Unknown]
  - Cellulitis staphylococcal [Not Recovered/Not Resolved]

NARRATIVE: CASE EVENT DATE: 201203
